FAERS Safety Report 25591549 (Version 1)
Quarter: 2025Q3

REPORT INFORMATION
  Report Type: Spontaneous
  Country: CN (occurrence: CN)
  Receive Date: 20250722
  Receipt Date: 20250722
  Transmission Date: 20251021
  Serious: Yes (Other)
  Sender: CALLIDITAS THERAPEUTICS AB
  Company Number: CN-EVEREST-20250100011

PATIENT
  Age: 54 Year
  Sex: Female
  Weight: 54 kg

DRUGS (6)
  1. BUDESONIDE [Suspect]
     Active Substance: BUDESONIDE
     Indication: IgA nephropathy
     Dosage: 16 MILLIGRAM, QD
     Route: 048
     Dates: start: 20250111
  2. PERINDOPRIL [Concomitant]
     Active Substance: PERINDOPRIL
     Indication: Nephropathy
     Dosage: 0.5 DOSAGE FORM, QD
     Route: 048
  3. Kunxian capsules [Concomitant]
     Indication: Proteinuria
     Route: 048
  4. HYDROXYCHLOROQUINE [Concomitant]
     Active Substance: HYDROXYCHLOROQUINE
     Indication: Nephropathy
     Dosage: 1.5 DOSAGE FORM, BID
     Route: 048
  5. HYDROXYCHLOROQUINE [Concomitant]
     Active Substance: HYDROXYCHLOROQUINE
     Indication: Nephropathy
     Dosage: 1 DOSAGE FORM, BID
     Route: 048
  6. FEBUXOSTAT [Concomitant]
     Active Substance: FEBUXOSTAT
     Indication: Blood uric acid increased
     Dosage: 0.5 DOSAGE FORM, QD
     Route: 048

REACTIONS (6)
  - Swelling face [Unknown]
  - Back pain [Recovering/Resolving]
  - Blood pressure increased [Unknown]
  - Glomerulosclerosis [Unknown]
  - Albumin urine present [Unknown]
  - Therapy interrupted [Unknown]

NARRATIVE: CASE EVENT DATE: 20250114
